FAERS Safety Report 5206431-4 (Version None)
Quarter: 2007Q1

REPORT INFORMATION
  Report Type: 
  Country: None (occurrence: None)
  Receive Date: 20070109
  Receipt Date: 20070102
  Transmission Date: 20070707
  Serious: Yes (Hospitalization)
  Sender: FDA-Public Use
  Company Number: 234502

PATIENT
  Age: 59 Year
  Sex: Male

DRUGS (1)
  1. AVASTIN [Suspect]
     Indication: COLORECTAL CANCER
     Dosage: 305 MG, INTRAVENOUS
     Route: 042

REACTIONS (7)
  - DYSPNOEA [None]
  - HEPATIC ENZYME INCREASED [None]
  - JOINT SWELLING [None]
  - OEDEMA PERIPHERAL [None]
  - SPLENOMEGALY [None]
  - SWELLING [None]
  - SWELLING FACE [None]
